FAERS Safety Report 8338360-1 (Version None)
Quarter: 2012Q2

REPORT INFORMATION
  Report Type: 
  Country: None (occurrence: None)
  Receive Date: 20120504
  Receipt Date: 20120425
  Transmission Date: 20120825
  Serious: Yes (Death)
  Sender: FDA-Public Use
  Company Number: IT-VALEANT-2012VX001943

PATIENT

DRUGS (2)
  1. FLUOROURACIL [Suspect]
     Route: 042
  2. SORAFENIB [Suspect]
     Route: 065

REACTIONS (1)
  - HEPATIC FAILURE [None]
